FAERS Safety Report 13032805 (Version 34)
Quarter: 2020Q3

REPORT INFORMATION
  Report Type: Report from Study
  Country: US (occurrence: US)
  Receive Date: 20161215
  Receipt Date: 20200701
  Transmission Date: 20201102
  Serious: Yes (Death, Hospitalization, Other)
  Sender: FDA-Public Use
  Company Number: US-ACTELION-A-NJ2016-133225

PATIENT
  Age: 60 Year
  Sex: Female
  Weight: 94.33 kg

DRUGS (12)
  1. LISINOPRIL. [Suspect]
     Active Substance: LISINOPRIL
     Indication: BLOOD PRESSURE MEASUREMENT
     Dosage: UNK
     Route: 065
     Dates: start: 20170313
  2. METOPROLOL SUCCINATE. [Suspect]
     Active Substance: METOPROLOL SUCCINATE
     Indication: BLOOD PRESSURE MEASUREMENT
     Dosage: 75 MG, BID
     Route: 065
     Dates: start: 20170313
  3. WARFARIN [Concomitant]
     Active Substance: WARFARIN
  4. AMLODIPINE [Suspect]
     Active Substance: AMLODIPINE BESYLATE
     Indication: BLOOD PRESSURE MEASUREMENT
     Dosage: UNK
     Route: 065
     Dates: start: 20170313
  5. METOPROLOL SUCCINATE. [Suspect]
     Active Substance: METOPROLOL SUCCINATE
     Dosage: 50 MG, BID
     Route: 065
  6. TYVASO [Concomitant]
     Active Substance: TREPROSTINIL
     Dosage: 15 BREATHS, TID
  7. ELIQUIS [Concomitant]
     Active Substance: APIXABAN
  8. OPSUMIT [Suspect]
     Active Substance: MACITENTAN
     Indication: PULMONARY ARTERIAL HYPERTENSION
     Dosage: 10 MG, QD
     Route: 048
     Dates: start: 20150308, end: 20200110
  9. OPSUMIT [Suspect]
     Active Substance: MACITENTAN
     Dosage: UNK
     Route: 048
  10. ADCIRCA [Concomitant]
     Active Substance: TADALAFIL
  11. OPSUMIT [Suspect]
     Active Substance: MACITENTAN
     Dosage: 10 MG, QD
     Route: 048
  12. OXYGEN. [Concomitant]
     Active Substance: OXYGEN

REACTIONS (70)
  - Pneumonia [Fatal]
  - Respiratory failure [Recovered/Resolved with Sequelae]
  - Oxygen consumption increased [Recovered/Resolved with Sequelae]
  - Hypotension [Recovered/Resolved]
  - Chest pain [Unknown]
  - Pulmonary arterial pressure abnormal [Unknown]
  - Bipolar disorder [Unknown]
  - Loss of consciousness [Fatal]
  - Incoherent [Unknown]
  - Oedema [Recovering/Resolving]
  - Brain natriuretic peptide increased [Unknown]
  - Ventricular tachycardia [Unknown]
  - Concomitant disease progression [Not Recovered/Not Resolved]
  - Mental status changes [Unknown]
  - Arthralgia [Recovered/Resolved]
  - Headache [Unknown]
  - Nocturnal dyspnoea [Unknown]
  - Acute respiratory failure [Fatal]
  - Oxygen saturation decreased [Recovered/Resolved]
  - Cough [Unknown]
  - Hypercapnia [Recovered/Resolved]
  - Product dose omission issue [Unknown]
  - Heart rate increased [Unknown]
  - Night sweats [Unknown]
  - Dyspnoea exertional [Unknown]
  - Oral disorder [Unknown]
  - Hypoxia [Recovered/Resolved with Sequelae]
  - Malaise [Unknown]
  - Jugular vein distension [Unknown]
  - Tachycardia [Recovered/Resolved]
  - Confusional state [Unknown]
  - Gastrooesophageal reflux disease [Unknown]
  - Dizziness [Unknown]
  - Dry mouth [Unknown]
  - Pain [Unknown]
  - Condition aggravated [Unknown]
  - Haemoptysis [Recovered/Resolved]
  - Interstitial lung disease [Unknown]
  - Memory impairment [Unknown]
  - Nausea [Recovered/Resolved]
  - Vomiting [Recovered/Resolved]
  - Dry throat [Unknown]
  - Somnolence [Unknown]
  - Urinary tract infection [Unknown]
  - Constipation [Fatal]
  - Oedema peripheral [Recovered/Resolved]
  - Fatigue [Not Recovered/Not Resolved]
  - Syncope [Recovered/Resolved]
  - Abdominal distension [Recovered/Resolved with Sequelae]
  - Dysuria [Unknown]
  - Swelling face [Not Recovered/Not Resolved]
  - Pulseless electrical activity [Fatal]
  - Dyspnoea [Not Recovered/Not Resolved]
  - Fluid retention [Unknown]
  - Localised oedema [Recovering/Resolving]
  - Pulmonary arterial hypertension [Recovered/Resolved]
  - Tracheobronchitis [Recovered/Resolved]
  - Productive cough [Recovered/Resolved]
  - Chest discomfort [Unknown]
  - Dysgeusia [Unknown]
  - Oropharyngeal pain [Unknown]
  - Throat tightness [Unknown]
  - Orthopnoea [Not Recovered/Not Resolved]
  - Abdominal pain [Unknown]
  - Face oedema [Recovering/Resolving]
  - Weight increased [Recovered/Resolved]
  - Cardiac failure congestive [Recovered/Resolved]
  - Back pain [Unknown]
  - Palpitations [Recovered/Resolved]
  - Flank pain [Unknown]

NARRATIVE: CASE EVENT DATE: 201607
